FAERS Safety Report 4869462-X (Version None)
Quarter: 2005Q4

REPORT INFORMATION
  Report Type: 
  Country: None (occurrence: None)
  Receive Date: 20051230
  Receipt Date: 20050302
  Transmission Date: 20060501
  Serious: Yes (Hospitalization)
  Sender: FDA-Public Use
  Company Number: US-MERCK-0503USA00372

PATIENT
  Age: 70 Year
  Sex: Male
  Weight: 100 kg

DRUGS (1)
  1. VIOXX [Suspect]
     Indication: RHEUMATOID ARTHRITIS
     Route: 048
     Dates: start: 19991101, end: 20030326

REACTIONS (3)
  - CEREBROVASCULAR ACCIDENT [None]
  - INTERVERTEBRAL DISC DISORDER [None]
  - POSTOPERATIVE INFECTION [None]
